FAERS Safety Report 12688839 (Version 1)
Quarter: 2016Q3

REPORT INFORMATION
  Report Type: Spontaneous
  Country: US (occurrence: None)
  Receive Date: 20160825
  Receipt Date: 20160825
  Transmission Date: 20161109
  Serious: Yes (Life-Threatening)
  Sender: FDA-Public Use
  Company Number: None

PATIENT
  Age: 63 Year
  Sex: Male
  Weight: 99.79 kg

DRUGS (1)
  1. PRAVASTATIN 20 MG [Suspect]
     Active Substance: PRAVASTATIN
     Indication: BLOOD CHOLESTEROL INCREASED
     Route: 048
     Dates: start: 20160609, end: 20160819

REACTIONS (3)
  - Oropharyngeal pain [None]
  - Obstructive airways disorder [None]
  - Enlarged uvula [None]

NARRATIVE: CASE EVENT DATE: 20160819
